FAERS Safety Report 6805458-6 (Version None)
Quarter: 2010Q2

REPORT INFORMATION
  Report Type: 
  Country: None (occurrence: None)
  Receive Date: 20100628
  Receipt Date: 20071211
  Transmission Date: 20101027
  Serious: No
  Sender: FDA-Public Use
  Company Number: US-PFIZER INC-2007101080

PATIENT
  Weight: 63.6 kg

DRUGS (8)
  1. XALATAN [Suspect]
     Indication: GLAUCOMA
     Route: 047
  2. DRUG, UNSPECIFIED [Concomitant]
  3. ATENOLOL [Concomitant]
  4. ACETYLSALICYLIC ACID [Concomitant]
  5. FISH OIL [Concomitant]
  6. CHONDROITIN/GLUCOSAMINE [Concomitant]
  7. CALTRATE [Concomitant]
  8. GENERAL NUTRIENTS [Concomitant]

REACTIONS (1)
  - INTRAOCULAR PRESSURE INCREASED [None]
